FAERS Safety Report 9759451 (Version 1)
Quarter: 2013Q4

REPORT INFORMATION
  Report Type: Spontaneous
  Country: US (occurrence: None)
  Receive Date: 20131216
  Receipt Date: 20131216
  Transmission Date: 20140711
  Serious: Yes (Other)
  Sender: FDA-Public Use
  Company Number: 163-21880-12110102(0)

PATIENT
  Age: 79 Year
  Sex: Male
  Weight: 82 kg

DRUGS (1)
  1. REVLIMID (LENALIDOMIDE) (5 MILLIGRAM CAPSULES) [Suspect]
     Indication: MYELOFIBROSIS
     Dosage: 5 MG, 1 IN 2 D, PO?

REACTIONS (2)
  - Fall [None]
  - Localised infection [None]
